FAERS Safety Report 23259994 (Version 1)
Quarter: 2023Q4

REPORT INFORMATION
  Report Type: Spontaneous
  Country: TW (occurrence: TW)
  Receive Date: 20231204
  Receipt Date: 20231204
  Transmission Date: 20240109
  Serious: Yes (Death, Other)
  Sender: FDA-Public Use
  Company Number: TW-ASTELLAS-2023US035770

PATIENT
  Age: 67 Year
  Sex: Male

DRUGS (6)
  1. GILTERITINIB [Suspect]
     Active Substance: GILTERITINIB
     Indication: Acute myeloid leukaemia
     Route: 065
     Dates: start: 202105
  2. GILTERITINIB [Suspect]
     Active Substance: GILTERITINIB
     Route: 065
     Dates: start: 20220329
  3. GILTERITINIB [Suspect]
     Active Substance: GILTERITINIB
     Route: 065
     Dates: start: 20230630
  4. ETOPOSIDE [Suspect]
     Active Substance: ETOPOSIDE
     Indication: Product used for unknown indication
     Dosage: 50 MG, ONCE DAILY (ETOPOSIDE 50MG QD)
     Route: 048
     Dates: start: 20220329
  5. HYDREA [Concomitant]
     Active Substance: HYDROXYUREA
     Indication: Cytoreductive surgery
     Dosage: UNK, UNKNOWN FREQ.
     Route: 065
  6. HYDREA [Concomitant]
     Active Substance: HYDROXYUREA
     Dosage: UNK UNK, ONCE DAILY (HYDREA 1-2 TAB QD)
     Route: 065
     Dates: start: 20230630

REACTIONS (13)
  - Death [Fatal]
  - Blast cell count increased [Unknown]
  - Klebsiella infection [Unknown]
  - Enterococcal infection [Unknown]
  - Anal ulcer [Unknown]
  - Alopecia [Unknown]
  - Cytopenia [Unknown]
  - Leukocytosis [Unknown]
  - Gastrointestinal haemorrhage [Unknown]
  - Large intestinal ulcer [Unknown]
  - Disease progression [Unknown]
  - Therapy non-responder [Unknown]
  - Therapy partial responder [Unknown]

NARRATIVE: CASE EVENT DATE: 20210913
